FAERS Safety Report 24995082 (Version 1)
Quarter: 2025Q1

REPORT INFORMATION
  Report Type: Report from Study
  Country: US (occurrence: US)
  Receive Date: 20250221
  Receipt Date: 20250221
  Transmission Date: 20250409
  Serious: Yes (Hospitalization, Other)
  Sender: ABBVIE
  Company Number: US-ABBVIE-6139251

PATIENT
  Sex: Male

DRUGS (1)
  1. CREON [Suspect]
     Active Substance: PANCRELIPASE AMYLASE\PANCRELIPASE LIPASE\PANCRELIPASE PROTEASE
     Indication: Product used for unknown indication
     Route: 048
     Dates: start: 2022

REACTIONS (10)
  - Gallbladder operation [Unknown]
  - Pancreatic cyst [Unknown]
  - Hernia [Unknown]
  - Pancreatitis relapsing [Unknown]
  - Atrial fibrillation [Unknown]
  - Sepsis [Unknown]
  - Gastrointestinal disorder [Unknown]
  - Renal failure [Unknown]
  - Dehydration [Unknown]
  - Hypophagia [Unknown]
